FAERS Safety Report 10884799 (Version 1)
Quarter: 2015Q1

REPORT INFORMATION
  Report Type: Report from Study
  Country: ES (occurrence: ES)
  Receive Date: 20150304
  Receipt Date: 20150304
  Transmission Date: 20150721
  Serious: Yes (Other)
  Sender: FDA-Public Use
  Company Number: ES-SA-2015SA024972

PATIENT
  Age: 71 Year
  Sex: Female

DRUGS (9)
  1. ACETYLCYSTEINE. [Concomitant]
     Active Substance: ACETYLCYSTEINE
     Indication: PNEUMONIA
     Dosage: DOSE: 1-1-1
     Dates: start: 20150222
  2. LANTUS SOLOSTAR [Suspect]
     Active Substance: INSULIN GLARGINE
     Indication: TYPE 2 DIABETES MELLITUS
     Route: 058
     Dates: start: 2013
  3. LANTUS SOLOSTAR [Suspect]
     Active Substance: INSULIN GLARGINE
     Indication: TYPE 2 DIABETES MELLITUS
     Route: 058
     Dates: start: 20150225
  4. SOLOSTAR [Concomitant]
     Active Substance: DEVICE
     Dates: start: 20150225
  5. NOVORAPID [Concomitant]
     Active Substance: INSULIN ASPART
     Indication: TYPE 2 DIABETES MELLITUS
     Dosage: TREATMENT START DATE: 2 YEARS?DOSE: 30-30-30
     Route: 058
  6. GALVUS [Concomitant]
     Active Substance: VILDAGLIPTIN
     Dosage: TREATMENT START DATE: 8 MONTHS?DOSE: 1-0-1
     Route: 048
  7. OSELTAMIVIR [Concomitant]
     Active Substance: OSELTAMIVIR
     Dosage: 2.5 TABLETS IN BREAKFAST AND DINNER
     Dates: start: 20150225
  8. SERETIDE [Concomitant]
     Active Substance: FLUTICASONE FUROATE\SALMETEROL XINAFOATE
     Indication: PNEUMONIA
     Route: 055
     Dates: start: 20150224
  9. MOXIFLOXACIN [Concomitant]
     Active Substance: MOXIFLOXACIN
     Indication: PNEUMONIA
     Dosage: DOSE: 0-0-1
     Route: 048
     Dates: start: 20150223

REACTIONS (9)
  - Influenza [Unknown]
  - Pneumonia [Unknown]
  - Diarrhoea [Unknown]
  - Hallucination [Unknown]
  - Dyspnoea [Unknown]
  - Pyrexia [Unknown]
  - Drug administration error [Unknown]
  - Vomiting [Unknown]
  - Hyperglycaemia [Recovered/Resolved]

NARRATIVE: CASE EVENT DATE: 2013
